FAERS Safety Report 8352521-7 (Version None)
Quarter: 2012Q2

REPORT INFORMATION
  Report Type: 
  Country: None (occurrence: None)
  Receive Date: 20120511
  Receipt Date: 20120508
  Transmission Date: 20120825
  Serious: Yes (Other)
  Sender: FDA-Public Use
  Company Number: PHHY2012NZ039535

PATIENT
  Sex: Male

DRUGS (4)
  1. RISPERIDONE [Concomitant]
     Dosage: 6 MG, UNK
  2. CLOZARIL [Suspect]
     Dosage: 625 MG, UNK
     Route: 048
  3. VALPROATE SODIUM [Concomitant]
     Indication: MOOD ALTERED
  4. CLOZARIL [Suspect]
     Dosage: 575 MG, QD/ 275 MG AT MORNING AND 300 MG AT NIGHT
     Route: 048

REACTIONS (2)
  - ANTIPSYCHOTIC DRUG LEVEL INCREASED [None]
  - PSYCHIATRIC DECOMPENSATION [None]
